FAERS Safety Report 7071810-X (Version None)
Quarter: 2010Q4

REPORT INFORMATION
  Report Type: 
  Country: None (occurrence: None)
  Receive Date: 20101029
  Receipt Date: 20091109
  Transmission Date: 20110411
  Serious: No
  Sender: FDA-Public Use
  Company Number: A0813382A

PATIENT
  Age: 51 Year
  Sex: Male

DRUGS (7)
  1. ADVAIR DISKUS 100/50 [Suspect]
     Indication: ASTHMA
     Dosage: 1PUFF TWICE PER DAY
     Route: 055
     Dates: start: 20010101
  2. LIPITOR [Concomitant]
  3. NEXIUM [Concomitant]
  4. TRICOR [Concomitant]
  5. FLONASE [Concomitant]
  6. PROVENTIL [Concomitant]
  7. SINGULAIR [Concomitant]

REACTIONS (1)
  - BLOOD GLUCOSE INCREASED [None]
